FAERS Safety Report 14051749 (Version 2)
Quarter: 2017Q4

REPORT INFORMATION
  Report Type: Spontaneous
  Country: JP (occurrence: JP)
  Receive Date: 20171006
  Receipt Date: 20171024
  Transmission Date: 20180321
  Serious: Yes (Death)
  Sender: FDA-Public Use
  Company Number: JP-OTSUKA-2017_021246

PATIENT

DRUGS (1)
  1. SAMSCA [Suspect]
     Active Substance: TOLVAPTAN
     Indication: OEDEMA DUE TO HEPATIC DISEASE
     Dosage: UNK
     Route: 048

REACTIONS (4)
  - Hypernatraemia [Recovered/Resolved]
  - Regurgitation [Unknown]
  - Dysphagia [Unknown]
  - Hepatic cirrhosis [Fatal]
